FAERS Safety Report 17214534 (Version 1)
Quarter: 2020Q1

REPORT INFORMATION
  Report Type: Spontaneous
  Country: US (occurrence: US)
  Receive Date: 20191228
  Receipt Date: 20191228
  Transmission Date: 20200409
  Serious: Yes (Hospitalization)
  Sender: FDA-Public Use
  Company Number: None

PATIENT
  Age: 68 Year
  Sex: Female
  Weight: 45 kg

DRUGS (7)
  1. OXYCODONE [Suspect]
     Active Substance: OXYCODONE
  2. GABAPENTIN. [Suspect]
     Active Substance: GABAPENTIN
  3. ATIVAN [Suspect]
     Active Substance: LORAZEPAM
  4. RISPERIDONE. [Suspect]
     Active Substance: RISPERIDONE
  5. KEPPRA [Suspect]
     Active Substance: LEVETIRACETAM
  6. FIORICET WITH CODEINE [Suspect]
     Active Substance: ACETAMINOPHEN\BUTALBITAL\CAFFEINE\CODEINE PHOSPHATE
  7. LYRICA [Suspect]
     Active Substance: PREGABALIN

REACTIONS (3)
  - Toxicity to various agents [None]
  - Drug interaction [None]
  - Respiratory distress [None]
